FAERS Safety Report 7540578-2 (Version None)
Quarter: 2011Q2

REPORT INFORMATION
  Report Type: 
  Country: None (occurrence: None)
  Receive Date: 20110610
  Receipt Date: 20110603
  Transmission Date: 20111010
  Serious: Yes (Hospitalization)
  Sender: FDA-Public Use
  Company Number: B0725199A

PATIENT
  Age: 54 Year
  Sex: Female

DRUGS (2)
  1. AVANDAMET [Suspect]
     Route: 048
     Dates: start: 20021221, end: 20070801
  2. AVANDIA [Suspect]
     Route: 048
     Dates: start: 20011023, end: 20070501

REACTIONS (2)
  - CARDIAC DISORDER [None]
  - BRAIN INJURY [None]
